FAERS Safety Report 13899829 (Version 2)
Quarter: 2017Q4

REPORT INFORMATION
  Report Type: Report from Study
  Country: AU (occurrence: AU)
  Receive Date: 20170823
  Receipt Date: 20171109
  Transmission Date: 20180320
  Serious: Yes (Hospitalization, Other)
  Sender: FDA-Public Use
  Company Number: AU-REGENERON PHARMACEUTICALS, INC.-2016-20291

PATIENT

DRUGS (4)
  1. EYLEA [Suspect]
     Active Substance: AFLIBERCEPT
     Dosage: UNK, Q8WK. LAST EYLEA INJECTION FEB-2017.
     Route: 031
  2. EYLEA [Suspect]
     Active Substance: AFLIBERCEPT
     Dosage: EVERY 10 WEEKS
     Route: 031
     Dates: start: 20150316
  3. EYLEA [Suspect]
     Active Substance: AFLIBERCEPT
     Indication: RETINAL VEIN OCCLUSION
     Dosage: EVERY 12 WEEKS
     Route: 031
     Dates: start: 20150316
  4. EYLEA [Suspect]
     Active Substance: AFLIBERCEPT
     Indication: NEOVASCULAR AGE-RELATED MACULAR DEGENERATION
     Dosage: 2 MG, Q8WK.
     Route: 031
     Dates: start: 20150316

REACTIONS (10)
  - Macular oedema [Recovered/Resolved]
  - Visual impairment [Unknown]
  - Injection site swelling [Recovered/Resolved]
  - Vitreous floaters [Unknown]
  - Prostatomegaly [Unknown]
  - Injection site pain [Recovered/Resolved]
  - Dry age-related macular degeneration [Unknown]
  - Infection [Unknown]
  - Cataract [Unknown]
  - Off label use [Unknown]

NARRATIVE: CASE EVENT DATE: 20150316
